FAERS Safety Report 7428818-1 (Version None)
Quarter: 2011Q2

REPORT INFORMATION
  Report Type: 
  Country: None (occurrence: None)
  Receive Date: 20110421
  Receipt Date: 20110304
  Transmission Date: 20111010
  Serious: Yes (Other)
  Sender: FDA-Public Use
  Company Number: IT-PFIZER INC-2011086469

PATIENT
  Age: 67 Year
  Sex: Female

DRUGS (1)
  1. CELECOXIB [Suspect]
     Dosage: UNK

REACTIONS (1)
  - ANAPHYLACTIC SHOCK [None]
